FAERS Safety Report 12442918 (Version 2)
Quarter: 2016Q3

REPORT INFORMATION
  Report Type: Spontaneous
  Country: US (occurrence: US)
  Receive Date: 20160607
  Receipt Date: 20160823
  Transmission Date: 20161109
  Serious: Yes (Hospitalization, Other)
  Sender: FDA-Public Use
  Company Number: US-ELI_LILLY_AND_COMPANY-US201606001302

PATIENT
  Age: 54 Year
  Sex: Male
  Weight: 76.19 kg

DRUGS (3)
  1. TESTIM [Suspect]
     Active Substance: TESTOSTERONE
     Indication: ANDROGEN REPLACEMENT THERAPY
     Dosage: 1 DF, QD
     Route: 062
     Dates: start: 20080612, end: 201107
  2. AXIRON [Suspect]
     Active Substance: TESTOSTERONE
     Dosage: 120 MG, QD
     Route: 061
     Dates: start: 20111007, end: 201309
  3. AXIRON [Suspect]
     Active Substance: TESTOSTERONE
     Indication: ANDROGEN REPLACEMENT THERAPY
     Dosage: 60 MG, QD
     Route: 061
     Dates: start: 20110824

REACTIONS (1)
  - Pulmonary embolism [Recovered/Resolved]

NARRATIVE: CASE EVENT DATE: 20131027
